FAERS Safety Report 8242982-6 (Version None)
Quarter: 2012Q1

REPORT INFORMATION
  Report Type: 
  Country: None (occurrence: None)
  Receive Date: 20120329
  Receipt Date: 20120320
  Transmission Date: 20120608
  Serious: Yes (Other)
  Sender: FDA-Public Use
  Company Number: BR-PFIZER INC-2012075836

PATIENT
  Sex: Male

DRUGS (1)
  1. CELEBREX [Suspect]
     Indication: TOOTHACHE
     Dosage: UNK
     Dates: start: 20090101

REACTIONS (2)
  - TOOTHACHE [None]
  - TOOTH INFECTION [None]
